FAERS Safety Report 17647352 (Version 1)
Quarter: 2020Q2

REPORT INFORMATION
  Report Type: Spontaneous
  Country: US (occurrence: US)
  Receive Date: 20200409
  Receipt Date: 20200409
  Transmission Date: 20200713
  Serious: Yes (Other)
  Sender: FDA-Public Use
  Company Number: US-ROCHE-2574052

PATIENT
  Age: 52 Year
  Sex: Female
  Weight: 66.92 kg

DRUGS (2)
  1. ABRAXANE [Concomitant]
     Active Substance: PACLITAXEL
     Indication: TRIPLE NEGATIVE BREAST CANCER
     Dosage: 100 MG/M2, ONGOING: YES
     Route: 042
     Dates: start: 20200218
  2. TECENTRIQ [Suspect]
     Active Substance: ATEZOLIZUMAB
     Indication: TRIPLE NEGATIVE BREAST CANCER
     Dosage: NO
     Route: 042
     Dates: start: 20200218

REACTIONS (5)
  - Liver function test increased [Unknown]
  - Hepatomegaly [Unknown]
  - Alcohol abuse [Unknown]
  - Steatohepatitis [Unknown]
  - Portal fibrosis [Unknown]

NARRATIVE: CASE EVENT DATE: 20200316
